FAERS Safety Report 4915194-9 (Version None)
Quarter: 2006Q1

REPORT INFORMATION
  Report Type: 
  Country: None (occurrence: None)
  Receive Date: 20060217
  Receipt Date: 20060208
  Transmission Date: 20060701
  Serious: Yes (Other)
  Sender: FDA-Public Use
  Company Number: PHBS2006JP02298

PATIENT
  Age: 10 Year

DRUGS (3)
  1. ZADITEN [Suspect]
  2. THEOPHYLLINE [Suspect]
     Indication: ASTHMA
  3. CLARITHROMYCIN [Suspect]

REACTIONS (1)
  - CONVULSION [None]
